FAERS Safety Report 25631975 (Version 2)
Quarter: 2025Q4

REPORT INFORMATION
  Report Type: Report from Study
  Country: EU (occurrence: None)
  Receive Date: 20250801
  Receipt Date: 20251209
  Transmission Date: 20260119
  Serious: Yes (Other)
  Sender: UCB
  Company Number: EU-UCBSA-2025047106

PATIENT
  Age: 11 Year

DRUGS (3)
  1. FENFLURAMINE HYDROCHLORIDE [Suspect]
     Active Substance: FENFLURAMINE HYDROCHLORIDE
     Indication: Severe myoclonic epilepsy of infancy
     Dosage: 2.2 MILLIGRAM PER MILLILITRE, 2X/DAY (BID)
  2. POTASSIUM BROMIDE [Suspect]
     Active Substance: POTASSIUM BROMIDE
     Indication: Severe myoclonic epilepsy of infancy
     Dosage: 3000 MILLIGRAM/KILOGRAMDAY/DAY T0,T1,T2
  3. POTASSIUM BROMIDE [Suspect]
     Active Substance: POTASSIUM BROMIDE
     Dosage: 1000 MILLIGRAM/KILOGRAM/DAY AT T3

REACTIONS (2)
  - Psychotic behaviour [Unknown]
  - Somnolence [Unknown]
